FAERS Safety Report 6901914-0 (Version None)
Quarter: 2010Q3

REPORT INFORMATION
  Report Type: 
  Country: None (occurrence: None)
  Receive Date: 20100803
  Receipt Date: 20080328
  Transmission Date: 20110219
  Serious: Yes (Other)
  Sender: FDA-Public Use
  Company Number: US-PFIZER INC-2008020601

PATIENT

DRUGS (5)
  1. LYRICA [Suspect]
     Indication: FIBROMYALGIA
     Dates: start: 20080101
  2. TOPAMAX [Concomitant]
  3. SEROQUEL [Concomitant]
  4. XANAX [Concomitant]
  5. CELEXA [Concomitant]

REACTIONS (4)
  - AGITATION [None]
  - CONFUSIONAL STATE [None]
  - MANIA [None]
  - VEIN DISORDER [None]
